FAERS Safety Report 8779421 (Version 5)
Quarter: 2013Q3

REPORT INFORMATION
  Report Type: Report from Study
  Country: US (occurrence: US)
  Receive Date: 20120912
  Receipt Date: 20130830
  Transmission Date: 20140515
  Serious: Yes (Death, Hospitalization)
  Sender: FDA-Public Use
  Company Number: US-US-EMD SERONO, INC.-7159685

PATIENT
  Age: 66 Year
  Sex: Male
  Weight: 66 kg

DRUGS (4)
  1. REBIF [Suspect]
     Indication: MULTIPLE SCLEROSIS
     Route: 058
     Dates: start: 20031210
  2. CITALOPRAM [Concomitant]
     Indication: DEPRESSION
  3. SIMVASTATIN [Concomitant]
     Indication: BLOOD CHOLESTEROL
  4. TERAZOSIN [Concomitant]
     Indication: PRODUCT USED FOR UNKNOWN INDICATION

REACTIONS (9)
  - Sepsis [Fatal]
  - Pneumonia [Fatal]
  - Osteomyelitis [Fatal]
  - Myocardial infarction [Not Recovered/Not Resolved]
  - Hip fracture [Not Recovered/Not Resolved]
  - Tibia fracture [Not Recovered/Not Resolved]
  - Ankle fracture [Not Recovered/Not Resolved]
  - Road traffic accident [Not Recovered/Not Resolved]
  - Muscle spasms [Unknown]
